FAERS Safety Report 9479710 (Version 1)
Quarter: 2013Q3

REPORT INFORMATION
  Report Type: Spontaneous
  Country: US (occurrence: US)
  Receive Date: 20130828
  Receipt Date: 20130828
  Transmission Date: 20140515
  Serious: Yes (Hospitalization)
  Sender: FDA-Public Use
  Company Number: US-AMGEN-KDL041728

PATIENT
  Age: 49 Year
  Sex: 0

DRUGS (1)
  1. ENBREL [Suspect]
     Indication: RHEUMATOID ARTHRITIS
     Dosage: 25 MG, 2 TIMES/WK
     Route: 065
     Dates: start: 20010602

REACTIONS (3)
  - Umbilical hernia repair [Unknown]
  - Post procedural infection [Unknown]
  - Rheumatoid arthritis [Unknown]
